FAERS Safety Report 11184681 (Version 1)
Quarter: 2015Q2

REPORT INFORMATION
  Report Type: Spontaneous
  Country: GB (occurrence: GB)
  Receive Date: 20150612
  Receipt Date: 20150612
  Transmission Date: 20150821
  Serious: Yes (Other)
  Sender: FDA-Public Use
  Company Number: GB-TEVA-568713ACC

PATIENT
  Age: 49 Year
  Sex: Female
  Weight: 64 kg

DRUGS (3)
  1. PROGRAF [Suspect]
     Active Substance: TACROLIMUS\TACROLIMUS ANHYDROUS
     Indication: IMMUNOSUPPRESSION
     Dosage: 4.5MG AT 10AM AND 4MG AT 10PM.
     Route: 048
  2. ELIQUIS [Suspect]
     Active Substance: APIXABAN
     Dosage: 5 MILLIGRAM DAILY;
     Route: 048
     Dates: start: 20150505
  3. DOXYCYCLINE. [Interacting]
     Active Substance: DOXYCYCLINE
     Indication: SINUSITIS
     Dosage: 100 MILLIGRAM DAILY;
     Route: 048
     Dates: start: 20150520

REACTIONS (5)
  - Drug interaction [Unknown]
  - Headache [Unknown]
  - Drug level changed [Unknown]
  - Seizure [Unknown]
  - Renal impairment [Unknown]
